FAERS Safety Report 12696349 (Version 2)
Quarter: 2016Q4

REPORT INFORMATION
  Report Type: Spontaneous
  Country: AT (occurrence: AT)
  Receive Date: 20160830
  Receipt Date: 20161005
  Transmission Date: 20170207
  Serious: Yes (Other)
  Sender: FDA-Public Use
  Company Number: AT-009507513-1604AUT015572

PATIENT
  Age: 46 Year
  Sex: Male
  Weight: 90 kg

DRUGS (2)
  1. KEYTRUDA [Suspect]
     Active Substance: PEMBROLIZUMAB
     Dosage: 2 MG/KG BODY WEIGHT IN THREE WEEKS INTERVALS
     Route: 042
     Dates: start: 20160901
  2. KEYTRUDA [Suspect]
     Active Substance: PEMBROLIZUMAB
     Indication: NON-SMALL CELL LUNG CANCER
     Dosage: 2 MG/KG BODY WEIGHT IN THREE WEEKS INTERVALS
     Route: 042
     Dates: start: 20160329, end: 20160329

REACTIONS (7)
  - Thrombocytopenia [Unknown]
  - Herpes zoster [Unknown]
  - Pneumonia [Unknown]
  - Pancytopenia [Unknown]
  - General physical health deterioration [Unknown]
  - Off label use [Unknown]
  - Metastases to bone [Unknown]

NARRATIVE: CASE EVENT DATE: 2016
